FAERS Safety Report 9209392 (Version 1)
Quarter: 2013Q1

REPORT INFORMATION
  Report Type: Spontaneous
  Country: US (occurrence: None)
  Receive Date: 20120820
  Receipt Date: 20120820
  Transmission Date: 20140127
  Serious: No
  Sender: FDA-Public Use
  Company Number: 1000030390

PATIENT
  Age: 29 Year
  Sex: Female

DRUGS (5)
  1. VIIBRYD (VILAZODONE)(10 MILLIGRAM, TABLETS) [Suspect]
     Indication: DEPRESSION
     Dates: start: 20120207, end: 20120213
  2. VIIBRYD (VILAZODONE) [Suspect]
     Dates: start: 20120221, end: 20120413
  3. ARMOUR THYROID [Concomitant]
  4. NUVARING [Concomitant]
  5. XANAX [Concomitant]

REACTIONS (3)
  - Diarrhoea [None]
  - Nausea [None]
  - Vomiting [None]
